FAERS Safety Report 9277729 (Version 1)
Quarter: 2013Q2

REPORT INFORMATION
  Report Type: Spontaneous
  Country: CL (occurrence: CL)
  Receive Date: 20130508
  Receipt Date: 20130508
  Transmission Date: 20140414
  Serious: Yes (Hospitalization)
  Sender: FDA-Public Use
  Company Number: PHHY2013CL044301

PATIENT
  Age: 32 Year
  Sex: Male

DRUGS (1)
  1. LEPONEX [Suspect]
     Dosage: 150 MG, QD
     Route: 048
     Dates: start: 20060716

REACTIONS (1)
  - Angiopathy [Unknown]
